FAERS Safety Report 9448560 (Version 3)
Quarter: 2013Q3

REPORT INFORMATION
  Report Type: Spontaneous
  Country: US (occurrence: US)
  Receive Date: 20130808
  Receipt Date: 20130815
  Transmission Date: 20140515
  Serious: No
  Sender: FDA-Public Use
  Company Number: US-009507513-1307USA010299

PATIENT
  Sex: Female

DRUGS (2)
  1. COPPERTONE ULTRAGUARD QUICKCOVER LOTION SPRAY SPF 50 [Suspect]
     Indication: PRODUCT USED FOR UNKNOWN INDICATION
     Dosage: UNK, UNKNOWN
     Route: 061
  2. COPPERTONE ULTRAGUARD QUICKCOVER LOTION SPRAY SPF 50 [Suspect]
     Dosage: UNK
     Route: 061

REACTIONS (2)
  - Skin discolouration [Unknown]
  - Product quality issue [Unknown]
